FAERS Safety Report 23254890 (Version 1)
Quarter: 2023Q4

REPORT INFORMATION
  Report Type: Spontaneous
  Country: US (occurrence: US)
  Receive Date: 20231203
  Receipt Date: 20231203
  Transmission Date: 20240110
  Serious: No
  Sender: FDA-Public Use
  Company Number: US-AMNEAL PHARMACEUTICALS-2023-AMRX-01766

PATIENT
  Age: 28 Year

DRUGS (2)
  1. ISOTRETINOIN [Suspect]
     Active Substance: ISOTRETINOIN
     Indication: Product used for unknown indication
     Dosage: UNK
     Route: 065
     Dates: start: 20130530
  2. ZOLOFT [Concomitant]
     Active Substance: SERTRALINE HYDROCHLORIDE
     Indication: Anxiety
     Route: 065

REACTIONS (9)
  - Acne [Unknown]
  - Hyperhidrosis [Unknown]
  - Alopecia scarring [Unknown]
  - Dermatitis contact [Unknown]
  - Xerosis [Unknown]
  - Scar [Unknown]
  - Rash pruritic [Unknown]
  - Rash papular [Unknown]
  - Cheilitis [Unknown]

NARRATIVE: CASE EVENT DATE: 20230307
